FAERS Safety Report 11768779 (Version 1)
Quarter: 2015Q4

REPORT INFORMATION
  Report Type: Spontaneous
  Country: CA (occurrence: CA)
  Receive Date: 20151123
  Receipt Date: 20151123
  Transmission Date: 20160304
  Serious: Yes (Other)
  Sender: FDA-Public Use
  Company Number: PHHY2015CA147630

PATIENT
  Sex: Female

DRUGS (11)
  1. LABETALOL [Suspect]
     Active Substance: LABETALOL\LABETALOL HYDROCHLORIDE
     Indication: FOETAL EXPOSURE DURING PREGNANCY
     Route: 064
  2. METHADONE [Suspect]
     Active Substance: METHADONE HYDROCHLORIDE
     Indication: FOETAL EXPOSURE DURING PREGNANCY
     Route: 064
  3. METHYLDOPA. [Suspect]
     Active Substance: METHYLDOPA
     Indication: FOETAL EXPOSURE DURING PREGNANCY
     Route: 064
  4. HYDRALAZINE [Suspect]
     Active Substance: HYDRALAZINE HYDROCHLORIDE
     Indication: FOETAL EXPOSURE DURING PREGNANCY
     Dosage: MATERNAL DOSE: TOTAL 17.5 MG
     Route: 064
  5. METOPROLOL [Suspect]
     Active Substance: METOPROLOL
     Indication: FOETAL EXPOSURE DURING PREGNANCY
     Route: 064
  6. MAGNESIUM SULFATE. [Suspect]
     Active Substance: MAGNESIUM SULFATE
     Indication: FOETAL EXPOSURE DURING PREGNANCY
     Route: 064
  7. MORPHINE [Suspect]
     Active Substance: MORPHINE
     Indication: FOETAL EXPOSURE DURING PREGNANCY
     Dosage: MATERNAL DOSE: TOTAL 32.5 MG
     Route: 064
  8. PRAZOSIN [Suspect]
     Active Substance: PRAZOSIN
     Indication: FOETAL EXPOSURE DURING PREGNANCY
     Route: 064
  9. PHENOXYBENZAMINE [Suspect]
     Active Substance: PHENOXYBENZAMINE
     Indication: FOETAL EXPOSURE DURING PREGNANCY
     Route: 064
  10. NIFEDIPINE. [Suspect]
     Active Substance: NIFEDIPINE
     Indication: FOETAL EXPOSURE DURING PREGNANCY
     Route: 064
  11. BETAMETHASONE. [Suspect]
     Active Substance: BETAMETHASONE
     Indication: FOETAL EXPOSURE DURING PREGNANCY
     Route: 064

REACTIONS (3)
  - Foetal exposure during pregnancy [Unknown]
  - Premature baby [Unknown]
  - Low birth weight baby [Unknown]
